FAERS Safety Report 23823022 (Version 1)
Quarter: 2024Q2

REPORT INFORMATION
  Report Type: Spontaneous
  Country: CN (occurrence: CN)
  Receive Date: 20240506
  Receipt Date: 20240506
  Transmission Date: 20240715
  Serious: Yes (Hospitalization)
  Sender: FDA-Public Use
  Company Number: CN-JNJFOC-20240486590

PATIENT
  Age: 75 Year
  Sex: Male
  Weight: 60 kg

DRUGS (1)
  1. ERLEADA [Suspect]
     Active Substance: APALUTAMIDE
     Indication: Prostate cancer
     Route: 048
     Dates: start: 20240226, end: 20240423

REACTIONS (5)
  - Interstitial lung disease [Recovering/Resolving]
  - Rash [Recovering/Resolving]
  - Chest discomfort [Recovering/Resolving]
  - Emphysema [Recovering/Resolving]
  - Cough [Recovered/Resolved]

NARRATIVE: CASE EVENT DATE: 20240418
